FAERS Safety Report 5235041-8 (Version None)
Quarter: 2007Q1

REPORT INFORMATION
  Report Type: 
  Country: None (occurrence: None)
  Receive Date: 20070207
  Receipt Date: 20070116
  Transmission Date: 20070707
  Serious: Yes (Death)
  Sender: FDA-Public Use
  Company Number: 477732

PATIENT
  Age: 50 Year
  Sex: Male
  Weight: 78 kg

DRUGS (17)
  1. PEG-INTERFERON ALFA 2A (RO 25-8310) (PEG-INTERFERON ALFA 2A) [Suspect]
     Indication: HEPATITIS C
     Dosage: 80 MCG 1 PER 1 WEEK SUBCTAENOUS
     Route: 058
     Dates: start: 20060718, end: 20060730
  2. RIBAVIRIN [Suspect]
     Indication: HEPATITIS C
     Dosage: 1000 MG DAILY ORAL
     Route: 048
     Dates: start: 20000718, end: 20060730
  3. LABETALOL (LABETOLOL HYDROCHLORIDE) [Concomitant]
  4. PROBENECID [Concomitant]
  5. TOPAMAX [Concomitant]
  6. MECLIZINE [Concomitant]
  7. CLONAZEPAM [Concomitant]
  8. FAMOTIDINE [Concomitant]
  9. INDOMETHACIN [Concomitant]
  10. REMERON [Concomitant]
  11. TOFRANIL [Concomitant]
  12. ALBUTEROL [Concomitant]
  13. TRAMADOL HCL [Concomitant]
  14. ENALAPRIL TABLETS (ENALAPRIL) [Concomitant]
  15. FIORICET [Concomitant]
  16. GLUCOTROL XL [Concomitant]
  17. LOMOTIL (ATROPINE SULFATE/DIPHENOXYLATE HDYROCHLORIDE/LOPERAMIDE HYDRO [Concomitant]

REACTIONS (5)
  - ABDOMINAL PAIN [None]
  - CARDIO-RESPIRATORY ARREST [None]
  - CHILLS [None]
  - FATIGUE [None]
  - NAUSEA [None]
